FAERS Safety Report 20735610 (Version 1)
Quarter: 2022Q2

REPORT INFORMATION
  Report Type: Spontaneous
  Country: CN (occurrence: None)
  Receive Date: 20220421
  Receipt Date: 20220421
  Transmission Date: 20220721
  Serious: Yes (Other)
  Sender: FDA-Public Use
  Company Number: CN-ROCHE-3078859

PATIENT
  Age: 55 Year
  Sex: Male
  Weight: 68.1 kg

DRUGS (10)
  1. MABTHERA [Suspect]
     Active Substance: RITUXIMAB
     Indication: Gastrointestinal lymphoma
     Route: 041
     Dates: start: 20220308
  2. MABTHERA [Suspect]
     Active Substance: RITUXIMAB
     Route: 041
     Dates: start: 20220308
  3. CYCLOPHOSPHAMIDE [Suspect]
     Active Substance: CYCLOPHOSPHAMIDE
     Indication: Gastrointestinal lymphoma
     Route: 041
     Dates: start: 20220308
  4. EPIRUBICIN HYDROCHLORIDE [Suspect]
     Active Substance: EPIRUBICIN HYDROCHLORIDE
     Indication: Gastrointestinal lymphoma
     Route: 041
     Dates: start: 20220308
  5. VINDESINE SULFATE [Suspect]
     Active Substance: VINDESINE SULFATE
     Indication: Gastrointestinal lymphoma
     Route: 041
     Dates: start: 20220308
  6. SODIUM CHLORIDE [Concomitant]
     Active Substance: SODIUM CHLORIDE
     Indication: Unevaluable event
     Dosage: SOLVENT FOR RITUXIMAB 0.1G
     Route: 041
     Dates: start: 20220308
  7. SODIUM CHLORIDE [Concomitant]
     Active Substance: SODIUM CHLORIDE
     Dosage: SOLVENT FOR RITUXIMAB 0.5G
     Route: 041
     Dates: start: 20220308
  8. SODIUM CHLORIDE [Concomitant]
     Active Substance: SODIUM CHLORIDE
     Dosage: SOLVENT FOR EPIRUBICIN
     Route: 041
     Dates: start: 20220308
  9. SODIUM CHLORIDE [Concomitant]
     Active Substance: SODIUM CHLORIDE
     Dosage: SOLVENT FOR VINDESINE
     Route: 041
     Dates: start: 20220308
  10. SODIUM CHLORIDE [Concomitant]
     Active Substance: SODIUM CHLORIDE
     Dosage: SOLVENT FOR CYCLOPHOSPHAMIDE
     Route: 041
     Dates: start: 20220308

REACTIONS (2)
  - Granulocytopenia [Recovered/Resolved]
  - White blood cell count decreased [Recovered/Resolved]

NARRATIVE: CASE EVENT DATE: 20220318
